FAERS Safety Report 8309578-9 (Version None)
Quarter: 2012Q2

REPORT INFORMATION
  Report Type: 
  Country: None (occurrence: None)
  Receive Date: 20120425
  Receipt Date: 20120419
  Transmission Date: 20120825
  Serious: Yes (Life-Threatening, Hospitalization)
  Sender: FDA-Public Use
  Company Number: EG-SANOFI-AVENTIS-2012SA028124

PATIENT
  Age: 49 Year
  Sex: Female

DRUGS (1)
  1. LANTUS [Suspect]
     Dosage: DOSE:24 UNIT(S)
     Route: 058
     Dates: start: 20110924, end: 20120229

REACTIONS (2)
  - HYPERGLYCAEMIA [None]
  - DIABETIC HYPERGLYCAEMIC COMA [None]
